FAERS Safety Report 16352373 (Version 3)
Quarter: 2019Q2

REPORT INFORMATION
  Report Type: Report from Study
  Country: US (occurrence: US)
  Receive Date: 20190524
  Receipt Date: 20190611
  Transmission Date: 20190711
  Serious: Yes (Death, Hospitalization, Other)
  Sender: FDA-Public Use
  Company Number: US-GILEAD-2019-0403816

PATIENT
  Age: 72 Year
  Sex: Male

DRUGS (3)
  1. METOLAZONE. [Concomitant]
     Active Substance: METOLAZONE
  2. AMBRISENTAN [Suspect]
     Active Substance: AMBRISENTAN
     Indication: PULMONARY HYPERTENSION
     Dosage: 5 MG, QD
     Route: 065
     Dates: start: 20190418
  3. VENTAVIS [Concomitant]
     Active Substance: ILOPROST

REACTIONS (8)
  - Fluid retention [Not Recovered/Not Resolved]
  - Peripheral swelling [Unknown]
  - Hypotension [Unknown]
  - Pulmonary hypertension [Not Recovered/Not Resolved]
  - Death [Fatal]
  - Cardiac failure congestive [Not Recovered/Not Resolved]
  - Dehydration [Unknown]
  - Oedema peripheral [Unknown]
